FAERS Safety Report 20131321 (Version 1)
Quarter: 2021Q4

REPORT INFORMATION
  Report Type: Spontaneous
  Country: US (occurrence: None)
  Receive Date: 20211130
  Receipt Date: 20211130
  Transmission Date: 20220303
  Serious: No
  Sender: FDA-Public Use
  Company Number: None

PATIENT
  Age: 81 Year
  Sex: Female
  Weight: 64.35 kg

DRUGS (1)
  1. EVEROLIMUS [Suspect]
     Active Substance: EVEROLIMUS
     Indication: Breast cancer
     Dosage: FREQUENCY : DAILY;?
     Route: 048

REACTIONS (5)
  - Adverse drug reaction [None]
  - Decreased appetite [None]
  - Ageusia [None]
  - Diarrhoea [None]
  - Weight increased [None]

NARRATIVE: CASE EVENT DATE: 20211130
